FAERS Safety Report 7094576-6 (Version None)
Quarter: 2010Q4

REPORT INFORMATION
  Report Type: 
  Country: None (occurrence: None)
  Receive Date: 20101110
  Receipt Date: 20101028
  Transmission Date: 20110411
  Serious: Yes (Hospitalization)
  Sender: FDA-Public Use
  Company Number: ES-ELI_LILLY_AND_COMPANY-ES201010006919

PATIENT
  Sex: Female
  Weight: 46 kg

DRUGS (8)
  1. FORTEO [Suspect]
     Indication: OSTEOPOROSIS
     Dosage: 20 UG, DAILY (1/D)
     Route: 058
     Dates: start: 20100914
  2. DIGOXIN [Concomitant]
     Indication: CARDIAC DISORDER
     Dosage: UNK, DAILY (1/D)
     Route: 048
  3. SEGURIL [Concomitant]
     Indication: CARDIAC DISORDER
     Dosage: UNK, AS NEEDED
     Route: 048
  4. ALDACTONE [Concomitant]
     Indication: CARDIAC DISORDER
     Dosage: UNK, DAILY (1/D)
     Route: 048
  5. CHLORTHALIDONE [Concomitant]
     Indication: CARDIAC DISORDER
     Dosage: UNK, DAILY (1/D)
     Route: 048
  6. YATROX [Concomitant]
     Indication: NAUSEA
     Dosage: UNK, 2/D
     Route: 048
  7. MOTILIUM [Concomitant]
     Indication: NAUSEA
     Dosage: UNK, 2/D
     Route: 048
  8. DURAGESIC-100 [Concomitant]
     Indication: PAIN
     Dosage: UNK, 1/48HOUR
     Route: 062

REACTIONS (2)
  - FALL [None]
  - JOINT INJURY [None]
